FAERS Safety Report 7412028-8 (Version None)
Quarter: 2011Q2

REPORT INFORMATION
  Report Type: 
  Country: None (occurrence: None)
  Receive Date: 20110404
  Receipt Date: 20110324
  Transmission Date: 20111010
  Serious: Yes (Other)
  Sender: FDA-Public Use
  Company Number: 1000017800

PATIENT
  Age: 84 Year
  Sex: Female
  Weight: 58 kg

DRUGS (6)
  1. SEREVENT (SALMETEROL) (SALMETEROL) [Concomitant]
  2. BEROTEC (FENOTEROL HYDROBROMIDE) (FENOTEROL HYDROBROMIDE) [Concomitant]
  3. ROFLUMILAST (ROFLUMILAST) (TABLETS) [Suspect]
     Indication: CHRONIC OBSTRUCTIVE PULMONARY DISEASE
     Dosage: 500 MCG (500 MCG, 1 IN 1 D)
     Dates: start: 20101205, end: 20101208
  4. EUPHYLONG (THEOPHYLLINE) (THEOPHYLLINE) [Concomitant]
  5. DECORTIN (PREDNISONE) (PREDNISONE) [Concomitant]
  6. ONBREZ (INDACATEROL) (INDACATEROL) [Concomitant]

REACTIONS (2)
  - DECREASED APPETITE [None]
  - GENERAL PHYSICAL HEALTH DETERIORATION [None]
